FAERS Safety Report 9879434 (Version 2)
Quarter: 2014Q1

REPORT INFORMATION
  Report Type: Spontaneous
  Country: US (occurrence: US)
  Receive Date: 20140206
  Receipt Date: 20140311
  Transmission Date: 20141002
  Serious: No
  Sender: FDA-Public Use
  Company Number: US-B.I. PHARMACEUTICALS,INC./RIDGEFIELD-2014-BI-04444BP

PATIENT
  Sex: Male
  Weight: 86 kg

DRUGS (6)
  1. PRADAXA [Suspect]
     Indication: ATRIAL FIBRILLATION
     Dosage: 150 MG
     Route: 048
     Dates: start: 2012
  2. LANTUS [Concomitant]
     Indication: DIABETES MELLITUS
     Dosage: FORMULATION:SUBCUTANEOUS DAILY DOSE: 35 UNITS
     Route: 058
     Dates: start: 2010
  3. NOVOLOG [Concomitant]
     Indication: DIABETES MELLITUS
     Dosage: FORMULATION: SUBCUTANEOUS DAILY DOSE: 15 UNITS
     Route: 058
  4. ALLOPURINOL [Concomitant]
     Dosage: 100 MG
     Route: 048
  5. LIPITOR [Concomitant]
     Indication: BLOOD CHOLESTEROL INCREASED
     Dosage: 40 MG
     Route: 048
  6. LASIX [Concomitant]
     Indication: RENAL FAILURE
     Dosage: 20 MG
     Route: 048

REACTIONS (1)
  - Tremor [Not Recovered/Not Resolved]
